FAERS Safety Report 5003322-9 (Version None)
Quarter: 2006Q2

REPORT INFORMATION
  Report Type: 
  Country: None (occurrence: None)
  Receive Date: 20060511
  Receipt Date: 20060505
  Transmission Date: 20061013
  Serious: Yes (Hospitalization)
  Sender: FDA-Public Use
  Company Number: FRWYE601904MAY06

PATIENT
  Age: 80 Year
  Sex: Male

DRUGS (1)
  1. EFFEXOR XR [Suspect]
     Indication: DEPRESSION
     Dosage: 112.5 MG TOTAL DAILY
     Route: 048
     Dates: start: 20051001, end: 20060401

REACTIONS (5)
  - COMA [None]
  - DRUG INEFFECTIVE [None]
  - DYSPNOEA [None]
  - HYPOXIA [None]
  - SLEEP APNOEA SYNDROME [None]
